FAERS Safety Report 20764421 (Version 1)
Quarter: 2022Q2

REPORT INFORMATION
  Report Type: Spontaneous
  Country: US (occurrence: None)
  Receive Date: 20220428
  Receipt Date: 20220428
  Transmission Date: 20220721
  Serious: Yes (Hospitalization, Disabling)
  Sender: FDA-Public Use
  Company Number: None

PATIENT
  Age: 55 Year
  Sex: Male
  Weight: 125.55 kg

DRUGS (7)
  1. DOTAREM [Suspect]
     Active Substance: GADOTERATE MEGLUMINE
     Indication: Scan with contrast
  2. LEVEMIR [Concomitant]
     Active Substance: INSULIN DETEMIR
  3. NOVOLOG [Concomitant]
     Active Substance: INSULIN ASPART
  4. WARFARIN [Concomitant]
     Active Substance: WARFARIN
  5. LISINOPRIL [Concomitant]
     Active Substance: LISINOPRIL
  6. VITAMIN C [Concomitant]
     Active Substance: ASCORBIC ACID
  7. VITAMIN D [Suspect]
     Active Substance: VITAMIN D NOS

REACTIONS (12)
  - Contrast media reaction [None]
  - Headache [None]
  - Tinnitus [None]
  - Blood glucose increased [None]
  - Weight increased [None]
  - Blood glucose fluctuation [None]
  - Visual impairment [None]
  - Visual field defect [None]
  - Renal impairment [None]
  - Back pain [None]
  - Hyponatraemia [None]
  - Cerebrovascular accident [None]

NARRATIVE: CASE EVENT DATE: 20211026
